FAERS Safety Report 13228074 (Version 2)
Quarter: 2017Q1

REPORT INFORMATION
  Report Type: Report from Study
  Country: US (occurrence: US)
  Receive Date: 20170213
  Receipt Date: 20170217
  Transmission Date: 20170428
  Serious: Yes (Other)
  Sender: FDA-Public Use
  Company Number: US-BAXALTA-2017BLT001094

PATIENT
  Sex: Female

DRUGS (1)
  1. HYQVIA [Suspect]
     Active Substance: HUMAN IMMUNOGLOBULIN G\HYALURONIDASE RECOMBINANT HUMAN
     Indication: PRODUCT USED FOR UNKNOWN INDICATION
     Dosage: 40 G, UNK
     Route: 058

REACTIONS (6)
  - Product contamination [Unknown]
  - Cellulitis [Recovering/Resolving]
  - Infusion site erythema [Recovered/Resolved]
  - Infusion site extravasation [Recovered/Resolved]
  - Procedural complication [Recovered/Resolved]
  - Infusion site bruising [Recovered/Resolved]
